FAERS Safety Report 14306130 (Version 5)
Quarter: 2018Q3

REPORT INFORMATION
  Report Type: Spontaneous
  Country: IT (occurrence: IT)
  Receive Date: 20171219
  Receipt Date: 20180831
  Transmission Date: 20181010
  Serious: Yes (Death, Hospitalization, Other)
  Sender: FDA-Public Use
  Company Number: IT-TEVA-2017-IT-832670

PATIENT
  Age: 86 Year
  Sex: Female
  Weight: 60 kg

DRUGS (2)
  1. CLOPIDOGREL [Suspect]
     Active Substance: CLOPIDOGREL BISULFATE
     Indication: ANGINA PECTORIS
     Dosage: 75 MILLIGRAM DAILY; 75 MG, QD
     Route: 048
     Dates: start: 20161010
  2. ASPIRINA [Suspect]
     Active Substance: ASPIRIN
     Indication: ANGINA PECTORIS
     Dosage: 100 MILLIGRAM DAILY;
     Route: 065
     Dates: start: 20161010

REACTIONS (11)
  - Hypotension [Fatal]
  - Shock haemorrhagic [Unknown]
  - Nausea [Unknown]
  - Sopor [Unknown]
  - Vasoconstriction [Unknown]
  - Anaemia [Fatal]
  - Tachyarrhythmia [Fatal]
  - Atrial fibrillation [Fatal]
  - Dyspnoea [Unknown]
  - Chest pain [Unknown]
  - Gastrointestinal haemorrhage [Unknown]

NARRATIVE: CASE EVENT DATE: 20171107
